FAERS Safety Report 13784849 (Version 1)
Quarter: 2017Q3

REPORT INFORMATION
  Report Type: Spontaneous
  Country: US (occurrence: US)
  Receive Date: 20170724
  Receipt Date: 20170724
  Transmission Date: 20171127
  Serious: No
  Sender: FDA-Public Use
  Company Number: US-IMPAX LABORATORIES, INC-2017-IPXL-01884

PATIENT
  Age: 74 Year
  Sex: Female
  Weight: 46 kg

DRUGS (1)
  1. RYTARY [Suspect]
     Active Substance: CARBIDOPA\LEVODOPA
     Indication: PARKINSON^S DISEASE
     Dosage: 36.25/145MG 1 CAPSULE AT 1PM, 1 CAPSULE 48.75/195MG AT 7 AM AND 7PM
     Route: 048

REACTIONS (5)
  - Malaise [Recovering/Resolving]
  - Joint injury [Recovering/Resolving]
  - Pyrexia [Recovering/Resolving]
  - Fall [Unknown]
  - Flushing [Recovering/Resolving]

NARRATIVE: CASE EVENT DATE: 201706
